FAERS Safety Report 17866364 (Version 1)
Quarter: 2020Q2

REPORT INFORMATION
  Report Type: Report from Study
  Country: ES (occurrence: ES)
  Receive Date: 20200605
  Receipt Date: 20200605
  Transmission Date: 20200714
  Serious: Yes (Other)
  Sender: FDA-Public Use
  Company Number: ES-TEVA-2020-ES-1243859

PATIENT
  Age: 79 Year
  Sex: Male

DRUGS (6)
  1. PREDNISONA (886A) [Suspect]
     Active Substance: PREDNISONE
     Indication: POLYCHONDRITIS
     Dosage: 20 MILLIGRAM
     Route: 048
     Dates: start: 20191105, end: 20191111
  2. ISONIAZIDA + PIRIDOXINA [Interacting]
     Active Substance: ISONIAZID\PYRIDOXINE
     Indication: TUBERCULOSIS
     Dosage: 300 MILLIGRAM
     Route: 048
     Dates: start: 20191008
  3. ALENDRONICO ACIDO (2781A) [Concomitant]
     Indication: OSTEOPOROSIS
     Dosage: 70 MILLIGRAM
     Route: 048
     Dates: start: 20171212
  4. LINAGLIPTINA + METFORMINA [Concomitant]
     Indication: DIABETES MELLITUS
     Dosage: 850 MILLIGRAM
     Route: 048
     Dates: start: 20171212, end: 20191111
  5. ACENOCUMAROL (220A) [Interacting]
     Active Substance: ACENOCOUMAROL
     Indication: CONGENITAL HYPERCOAGULATION
     Route: 048
     Dates: start: 20180409
  6. FLUCONAZOL (2432A) [Interacting]
     Active Substance: FLUCONAZOLE
     Indication: OESOPHAGEAL CANDIDIASIS
     Dosage: 200 MILLIGRAM
     Route: 048
     Dates: start: 20191105, end: 20191119

REACTIONS (2)
  - Drug interaction [Unknown]
  - International normalised ratio increased [Recovered/Resolved]

NARRATIVE: CASE EVENT DATE: 20191110
